FAERS Safety Report 7722077-8 (Version None)
Quarter: 2011Q3

REPORT INFORMATION
  Report Type: 
  Country: None (occurrence: None)
  Receive Date: 20110831
  Receipt Date: 20110731
  Transmission Date: 20111222
  Serious: Yes (Hospitalization)
  Sender: FDA-Public Use
  Company Number: HU-AMGEN-HUNNI2010002953

PATIENT
  Age: 8 Year
  Sex: Female

DRUGS (12)
  1. DIGIMERCK [Concomitant]
     Dosage: 0.05 MG, BID
  2. MINIPRESS [Concomitant]
     Dosage: 1 MG, TID
  3. EDNYT [Concomitant]
     Dosage: 2.5 MG, BID
  4. CALCICARB [Concomitant]
     Dosage: UNK UNK, TID
  5. SODIUM POLYSTYRENE SULFONATE [Concomitant]
     Dosage: UNK UNK, TID
  6. NORMODIPINE [Concomitant]
     Dosage: UNK UNK, Q12H
  7. DARBEPOETIN ALFA [Suspect]
     Indication: ANAEMIA OF CHRONIC DISEASE
     Dosage: 40 MUG, QWK
     Route: 058
     Dates: start: 20090118
  8. GENOTROPIN [Concomitant]
     Dosage: 1 MUG, QD
  9. HUMA-FOLACID [Concomitant]
     Dosage: UNK UNK, QD
  10. LACTASE [Concomitant]
  11. CEFUROXIME [Concomitant]
  12. DIOVAN [Concomitant]
     Dosage: 40 MG, QD

REACTIONS (1)
  - CARDIAC FAILURE [None]
